FAERS Safety Report 7134745-X (Version None)
Quarter: 2010Q4

REPORT INFORMATION
  Report Type: 
  Country: None (occurrence: None)
  Receive Date: 20101203
  Receipt Date: 20101129
  Transmission Date: 20110411
  Serious: Yes (Life-Threatening, Hospitalization)
  Sender: FDA-Public Use
  Company Number: BE-ROCHE-740139

PATIENT
  Sex: Male
  Weight: 114 kg

DRUGS (8)
  1. CAPECITABINE [Suspect]
     Indication: RECTAL CANCER
     Route: 048
     Dates: start: 20100830
  2. OXALIPLATIN [Suspect]
     Indication: RECTAL CANCER
     Route: 042
     Dates: start: 20100830
  3. ATORVASTATIN CALCIUM [Concomitant]
     Route: 048
     Dates: start: 20080101
  4. ATENOLOL [Concomitant]
     Route: 048
     Dates: start: 20080101
  5. ASPIRIN [Concomitant]
     Route: 048
     Dates: start: 20080101
  6. CLOPIDOGREL [Concomitant]
     Route: 048
     Dates: start: 20080101, end: 20101108
  7. GTN SPRAY [Concomitant]
     Indication: ANGINA PECTORIS
     Dosage: FREQUENCY: PRN
     Route: 055
     Dates: start: 20080101
  8. METFORMIN [Concomitant]
     Route: 048
     Dates: start: 20080101

REACTIONS (1)
  - PULMONARY EMBOLISM [None]
